FAERS Safety Report 17775749 (Version 2)
Quarter: 2020Q2

REPORT INFORMATION
  Report Type: Report from Study
  Country: CA (occurrence: CA)
  Receive Date: 20200513
  Receipt Date: 20200609
  Transmission Date: 20200714
  Serious: No
  Sender: FDA-Public Use
  Company Number: CA-JNJFOC-20200425187

PATIENT
  Age: 18 Year
  Sex: Female
  Weight: 55.39 kg

DRUGS (2)
  1. SIMPONI [Suspect]
     Active Substance: GOLIMUMAB
     Indication: JUVENILE IDIOPATHIC ARTHRITIS
     Route: 058
     Dates: start: 20171130
  2. SIMPONI [Suspect]
     Active Substance: GOLIMUMAB
     Route: 058
     Dates: start: 20171130

REACTIONS (4)
  - Product use issue [Unknown]
  - Therapeutic product effect decreased [Unknown]
  - Off label use [Unknown]
  - Needle issue [Unknown]

NARRATIVE: CASE EVENT DATE: 20200414
